FAERS Safety Report 4690644-4 (Version None)
Quarter: 2005Q2

REPORT INFORMATION
  Report Type: 
  Country: None (occurrence: None)
  Receive Date: 20050615
  Receipt Date: 20050614
  Transmission Date: 20051028
  Serious: Yes (Congenital Anomaly)
  Sender: FDA-Public Use
  Company Number: US-GLAXOSMITHKLINE-A0562508A

PATIENT
  Sex: Male
  Weight: 2.7 kg

DRUGS (5)
  1. COMBIVIR [Suspect]
     Indication: HIV INFECTION
     Dosage: 900MG PER DAY
     Dates: start: 20041216
  2. TRIZIVIR [Suspect]
     Indication: HIV INFECTION
     Dosage: 1500MG PER DAY
     Dates: start: 20021101, end: 20041216
  3. ZIDOVUDINE [Suspect]
     Indication: HIV INFECTION
     Route: 042
     Dates: start: 20050606, end: 20050606
  4. VIRACEPT [Suspect]
     Indication: HIV INFECTION
     Dosage: 2500MG PER DAY
     Dates: start: 20041216
  5. VIREAD [Suspect]
     Indication: HIV INFECTION
     Dosage: 300MG PER DAY
     Dates: start: 20021101, end: 20041216

REACTIONS (2)
  - DRUG EXPOSURE DURING PREGNANCY [None]
  - POLYDACTYLY [None]
